FAERS Safety Report 18222201 (Version 1)
Quarter: 2020Q3

REPORT INFORMATION
  Report Type: Spontaneous
  Country: US (occurrence: US)
  Receive Date: 20200902
  Receipt Date: 20200902
  Transmission Date: 20201103
  Serious: No
  Sender: FDA-Public Use
  Company Number: None

PATIENT
  Age: 58 Year
  Sex: Female
  Weight: 64.2 kg

DRUGS (16)
  1. PROCHLORPERAZINE PRN [Concomitant]
  2. AMBIEN [Concomitant]
     Active Substance: ZOLPIDEM TARTRATE
  3. GABAPENTIN. [Concomitant]
     Active Substance: GABAPENTIN
  4. CYCLOBENZAPRINE. [Concomitant]
     Active Substance: CYCLOBENZAPRINE
  5. DRONABINOL. [Concomitant]
     Active Substance: DRONABINOL
  6. ATORVASTATIN [Concomitant]
     Active Substance: ATORVASTATIN
  7. OMEPRAZOLE. [Concomitant]
     Active Substance: OMEPRAZOLE
  8. METOCLOPRAMIDE PRN [Concomitant]
  9. ZOFRAN PRN [Concomitant]
  10. OXYCODONE PRN [Concomitant]
  11. CYMBALTA [Concomitant]
     Active Substance: DULOXETINE HYDROCHLORIDE
  12. PROMETHAZINE PRN [Concomitant]
  13. SEROQUEL [Concomitant]
     Active Substance: QUETIAPINE FUMARATE
  14. WARFARIN [Concomitant]
     Active Substance: WARFARIN
  15. ZEJULA [Suspect]
     Active Substance: NIRAPARIB
     Indication: MALIGNANT PERITONEAL NEOPLASM
     Route: 048
     Dates: start: 20200804, end: 20200901
  16. ALPRAZOLAM. [Concomitant]
     Active Substance: ALPRAZOLAM

REACTIONS (1)
  - Peripheral swelling [None]

NARRATIVE: CASE EVENT DATE: 20200811
